FAERS Safety Report 21354721 (Version 2)
Quarter: 2022Q4

REPORT INFORMATION
  Report Type: Spontaneous
  Country: CN (occurrence: None)
  Receive Date: 20220920
  Receipt Date: 20221012
  Transmission Date: 20230112
  Serious: Yes (Life-Threatening)
  Sender: FDA-Public Use
  Company Number: 2022A285623

PATIENT
  Sex: Male
  Weight: 78 kg

DRUGS (9)
  1. IMFINZI [Suspect]
     Active Substance: DURVALUMAB
     Indication: Small cell lung cancer extensive stage
     Dosage: 1000MG/CYCLE
     Route: 042
     Dates: start: 20220516
  2. IMFINZI [Suspect]
     Active Substance: DURVALUMAB
     Indication: Chemotherapy
     Dosage: 1000MG/CYCLE
     Route: 042
     Dates: start: 20220516
  3. IMFINZI [Suspect]
     Active Substance: DURVALUMAB
     Indication: Small cell lung cancer extensive stage
     Dosage: 1000MG/CYCLE
     Route: 042
  4. IMFINZI [Suspect]
     Active Substance: DURVALUMAB
     Indication: Chemotherapy
     Dosage: 1000MG/CYCLE
     Route: 042
  5. IMFINZI [Suspect]
     Active Substance: DURVALUMAB
     Indication: Small cell lung cancer extensive stage
     Dosage: 1000MG/CYCLE
     Route: 042
  6. IMFINZI [Suspect]
     Active Substance: DURVALUMAB
     Indication: Chemotherapy
     Dosage: 1000MG/CYCLE
     Route: 042
  7. ETOPOSIDE [Concomitant]
     Active Substance: ETOPOSIDE
     Route: 065
  8. CARBOPLATIN [Concomitant]
     Active Substance: CARBOPLATIN
     Route: 065
  9. CISPLATIN [Concomitant]
     Active Substance: CISPLATIN
     Route: 065

REACTIONS (1)
  - Type 1 diabetes mellitus [Recovering/Resolving]
